FAERS Safety Report 19493938 (Version 3)
Quarter: 2021Q3

REPORT INFORMATION
  Report Type: Report from Study
  Country: US (occurrence: US)
  Receive Date: 20210705
  Receipt Date: 20210722
  Transmission Date: 20211014
  Serious: Yes (Other)
  Sender: FDA-Public Use
  Company Number: US-ORGANON-O2105USA002384

PATIENT
  Age: 17 Year
  Sex: Female
  Weight: 102.04 kg

DRUGS (2)
  1. IMPLANON [Suspect]
     Active Substance: ETONOGESTREL
     Indication: CONTRACEPTION
     Dosage: 68 MG IMPLANT, LEFT UPPER ARM, ONCE; DURATION REPORTED AS 3 YEARS; STRENGTH: 68 MG
     Route: 059
     Dates: start: 20210123, end: 20210615
  2. IMPLANON [Suspect]
     Active Substance: ETONOGESTREL
     Indication: HEAVY MENSTRUAL BLEEDING

REACTIONS (8)
  - Device dislocation [Recovered/Resolved]
  - Drug effective for unapproved indication [Unknown]
  - Product use in unapproved indication [Unknown]
  - Implant site bruising [Not Recovered/Not Resolved]
  - Device placement issue [Recovered/Resolved]
  - Implant site pain [Not Recovered/Not Resolved]
  - Pain in extremity [Not Recovered/Not Resolved]
  - Complication of device removal [Recovered/Resolved]

NARRATIVE: CASE EVENT DATE: 2021
